FAERS Safety Report 17069314 (Version 1)
Quarter: 2019Q4

REPORT INFORMATION
  Report Type: Spontaneous
  Country: US (occurrence: US)
  Receive Date: 20191125
  Receipt Date: 20191125
  Transmission Date: 20200122
  Serious: No
  Sender: FDA-Public Use
  Company Number: US-JNJFOC-20191115703

PATIENT
  Age: 7 Decade
  Sex: Female
  Weight: 68.1 kg

DRUGS (2)
  1. TRIAMCINOLONE ACETONIDE. [Concomitant]
     Active Substance: TRIAMCINOLONE ACETONIDE
     Indication: PRODUCT USED FOR UNKNOWN INDICATION
  2. WOMENS ROGAINE [Suspect]
     Active Substance: MINOXIDIL
     Indication: ALOPECIA
     Dosage: 1 ML TWICE DAILE
     Route: 061
     Dates: start: 20190407

REACTIONS (1)
  - Alopecia [Not Recovered/Not Resolved]
